FAERS Safety Report 17807624 (Version 1)
Quarter: 2020Q2

REPORT INFORMATION
  Report Type: Spontaneous
  Country: US (occurrence: US)
  Receive Date: 20200520
  Receipt Date: 20200520
  Transmission Date: 20200714
  Serious: No
  Sender: FDA-Public Use
  Company Number: US-SA-2020SA036401

PATIENT
  Age: 2 Year
  Sex: Female

DRUGS (1)
  1. LUMIZYME [Suspect]
     Active Substance: ALGLUCOSIDASE ALFA
     Indication: GLYCOGEN STORAGE DISEASE TYPE II
     Dosage: 250 MG, QOW
     Route: 042
     Dates: start: 20180413

REACTIONS (1)
  - Antibody test negative [Unknown]

NARRATIVE: CASE EVENT DATE: 20200429
